FAERS Safety Report 6071833-3 (Version None)
Quarter: 2009Q1

REPORT INFORMATION
  Report Type: 
  Country: None (occurrence: None)
  Receive Date: 20090210
  Receipt Date: 20090205
  Transmission Date: 20090719
  Serious: Yes (Death, Other)
  Sender: FDA-Public Use
  Company Number: PHBS2009CA00751

PATIENT
  Age: 39 Year
  Sex: Female

DRUGS (6)
  1. CYCLOSPORINE [Suspect]
     Indication: STEM CELL TRANSPLANT
  2. MYCOPHENOLATE MOFETIL [Suspect]
  3. BUSULFAN [Concomitant]
  4. FLUDARABINE [Concomitant]
  5. ANTI-THYMOCYTE GLOBULIN NOS [Concomitant]
  6. METHOTREXATE [Concomitant]

REACTIONS (6)
  - ACUTE GRAFT VERSUS HOST DISEASE [None]
  - ADENOVIRAL HEPATITIS [None]
  - CLONUS [None]
  - HEPATIC NECROSIS [None]
  - NEURALGIA [None]
  - PARAESTHESIA [None]
